FAERS Safety Report 4666197-3 (Version None)
Quarter: 2005Q2

REPORT INFORMATION
  Report Type: 
  Country: None (occurrence: None)
  Receive Date: 20050517
  Receipt Date: 20050517
  Transmission Date: 20051028
  Serious: Yes (Disabling, Other)
  Sender: FDA-Public Use
  Company Number: None

PATIENT
  Age: 27 Year
  Sex: Female
  Weight: 63.2768 kg

DRUGS (1)
  1. GENERIC AYGESTIN [Suspect]
     Indication: MENOMETRORRHAGIA
     Dosage: 5 MG PO QD
     Route: 048

REACTIONS (2)
  - MENORRHAGIA [None]
  - THERAPY NON-RESPONDER [None]
